FAERS Safety Report 7639521-7 (Version None)
Quarter: 2011Q3

REPORT INFORMATION
  Report Type: 
  Country: None (occurrence: None)
  Receive Date: 20110727
  Receipt Date: 20110719
  Transmission Date: 20111222
  Serious: Yes (Death, Hospitalization)
  Sender: FDA-Public Use
  Company Number: JP-GLAXOSMITHKLINE-B0715065A

PATIENT
  Sex: Male
  Weight: 64 kg

DRUGS (12)
  1. FUNGUARD [Concomitant]
     Dosage: 50MG PER DAY
     Route: 042
     Dates: start: 20080806, end: 20081014
  2. ALKERAN [Suspect]
     Indication: ALLOGENIC BONE MARROW TRANSPLANTATION THERAPY
     Dosage: 151MG PER DAY
     Route: 042
     Dates: start: 20080817, end: 20080818
  3. CYCLOSPORINE [Concomitant]
     Indication: IMMUNOSUPPRESSION
     Dosage: 30MG PER DAY
     Route: 065
     Dates: start: 20081007, end: 20081007
  4. CYCLOSPORINE [Concomitant]
     Dosage: 60MG PER DAY
     Route: 065
     Dates: start: 20081008, end: 20081008
  5. URSO 250 [Concomitant]
     Dosage: 600MG PER DAY
     Route: 048
     Dates: start: 20080816
  6. RABEPRAZOLE SODIUM [Concomitant]
     Dosage: 10MG PER DAY
     Route: 048
     Dates: start: 20080816
  7. PREDNISOLONE [Suspect]
     Dosage: 5MG PER DAY
     Dates: start: 20080815, end: 20081011
  8. TACROLIMUS [Concomitant]
     Indication: IMMUNOSUPPRESSION
     Dosage: 2MG PER DAY
     Route: 065
     Dates: start: 20080819, end: 20080926
  9. ZOVIRAX [Concomitant]
     Dosage: 1000MG PER DAY
     Route: 048
     Dates: start: 20080816, end: 20081003
  10. FLUDARA [Concomitant]
     Indication: ALLOGENIC BONE MARROW TRANSPLANTATION THERAPY
     Dosage: 42MG PER DAY
     Route: 042
     Dates: start: 20080814, end: 20080818
  11. RAMELTEON [Concomitant]
     Dosage: .3MG PER DAY
     Route: 042
     Dates: start: 20080815, end: 20080818
  12. CIPROFLOXACIN HCL [Concomitant]
     Dosage: 600MG PER DAY
     Route: 048
     Dates: start: 20080816, end: 20081003

REACTIONS (2)
  - ENTEROCOLITIS [None]
  - ADENOVIRUS INFECTION [None]
